FAERS Safety Report 6219607-4 (Version None)
Quarter: 2009Q2

REPORT INFORMATION
  Report Type: 
  Country: None (occurrence: None)
  Receive Date: 20090609
  Receipt Date: 20090528
  Transmission Date: 20091009
  Serious: Yes (Hospitalization, Other)
  Sender: FDA-Public Use
  Company Number: US-PFIZER INC-2009220095

PATIENT
  Sex: Male

DRUGS (3)
  1. NIFEDIPINE [Suspect]
     Dosage: 90 MG, UNK
  2. NIFEDIPINE [Suspect]
     Dosage: 60 MG, UNK
  3. NIFEDIPINE [Suspect]
     Dosage: 90 MG, UNK

REACTIONS (3)
  - COLON OPERATION [None]
  - DRUG INEFFECTIVE [None]
  - INTESTINAL OBSTRUCTION [None]
